FAERS Safety Report 5565919-7 (Version None)
Quarter: 2007Q4

REPORT INFORMATION
  Report Type: 
  Country: None (occurrence: None)
  Receive Date: 20071213
  Receipt Date: 20071130
  Transmission Date: 20080405
  Serious: Yes (Other)
  Sender: FDA-Public Use
  Company Number: GB-1164724

PATIENT
  Age: 6 Month
  Sex: Female

DRUGS (1)
  1. IOPIDINE [Suspect]
     Indication: HORNER'S SYNDROME
     Dosage: 1 DF TOTAL OPHTHALMIC
     Route: 047
     Dates: start: 20070511, end: 20070511

REACTIONS (2)
  - SOMNOLENCE [None]
  - UNRESPONSIVE TO STIMULI [None]
